APPROVED DRUG PRODUCT: SUCCINYLCHOLINE CHLORIDE
Active Ingredient: SUCCINYLCHOLINE CHLORIDE
Strength: 20MG/ML
Dosage Form/Route: INJECTABLE;INJECTION
Application: A213552 | Product #001
Applicant: NEXUS PHARMACEUTICALS LLC
Approved: Oct 27, 2020 | RLD: No | RS: No | Type: DISCN